FAERS Safety Report 10843685 (Version 1)
Quarter: 2015Q1

REPORT INFORMATION
  Report Type: Report from Study
  Country: US (occurrence: US)
  Receive Date: 20150220
  Receipt Date: 20150220
  Transmission Date: 20150721
  Serious: No
  Sender: FDA-Public Use
  Company Number: US-ABBVIE-14P-163-1290369-00

PATIENT
  Age: 49 Year
  Sex: Female

DRUGS (18)
  1. LOSARTAN [Concomitant]
     Active Substance: LOSARTAN
     Indication: BLOOD PRESSURE
     Dosage: 100/12.5
  2. PREDNISONE. [Concomitant]
     Active Substance: PREDNISONE
  3. MOBIC [Concomitant]
     Active Substance: MELOXICAM
     Indication: PRODUCT USED FOR UNKNOWN INDICATION
     Dosage: EVERY MORNING
  4. LOTEMAX [Concomitant]
     Active Substance: LOTEPREDNOL ETABONATE
     Indication: PRODUCT USED FOR UNKNOWN INDICATION
     Dosage: BOTH EYES
  5. ANTIBIOTICS [Concomitant]
     Active Substance: UNSPECIFIED INGREDIENT
     Indication: PROPHYLAXIS
     Route: 050
     Dates: start: 20141002, end: 20141002
  6. CLONIDINE. [Concomitant]
     Active Substance: CLONIDINE
     Indication: BLOOD PRESSURE INCREASED
  7. PREDNISONE. [Concomitant]
     Active Substance: PREDNISONE
     Indication: ANKYLOSING SPONDYLITIS
  8. HUMIRA [Suspect]
     Active Substance: ADALIMUMAB
     Indication: ANKYLOSING SPONDYLITIS
     Dosage: INITIAL DOSE
     Route: 050
     Dates: start: 20140918, end: 20140918
  9. HUMIRA [Suspect]
     Active Substance: ADALIMUMAB
     Route: 050
     Dates: start: 20140919
  10. PREDNISONE. [Concomitant]
     Active Substance: PREDNISONE
     Dates: start: 20141003
  11. PANTOPRAZOLE [Concomitant]
     Active Substance: PANTOPRAZOLE SODIUM
     Indication: GASTRIC DISORDER
     Dosage: EVERY MORNING
  12. CYCLOPENTOLATE [Concomitant]
     Active Substance: CYCLOPENTOLATE
     Indication: OCULAR DISCOMFORT
     Dosage: BOTH EYES
  13. TIZANIDINE (TIZANIDINE) [Concomitant]
     Active Substance: TIZANIDINE
     Indication: PRODUCT USED FOR UNKNOWN INDICATION
  14. TRAMADOL [Concomitant]
     Active Substance: TRAMADOL
     Indication: PAIN
     Route: 050
     Dates: start: 20141002, end: 20141002
  15. CEFUROXIME EXETIL [Concomitant]
     Indication: PROPHYLAXIS
     Dates: start: 20141002
  16. DILTIAZEM HYDROCHLORIDE EXTENDED RELEASE [Concomitant]
     Active Substance: DILTIAZEM HYDROCHLORIDE
     Indication: BLOOD PRESSURE
     Dosage: AT BEDTIME
  17. HYDROCODONE [Concomitant]
     Active Substance: HYDROCODONE
     Indication: PAIN
     Dosage: 325MG/10MG, EVERY 4 TO 6 HOURS
  18. LASIX [Concomitant]
     Active Substance: FUROSEMIDE
     Indication: PRODUCT USED FOR UNKNOWN INDICATION
     Route: 050
     Dates: start: 20141002, end: 20141002

REACTIONS (6)
  - Chest pain [Recovering/Resolving]
  - Malaise [Not Recovered/Not Resolved]
  - Back pain [Unknown]
  - Blood pressure increased [Unknown]
  - Pain [Unknown]
  - Neck mass [Unknown]

NARRATIVE: CASE EVENT DATE: 20140918
